FAERS Safety Report 20641740 (Version 1)
Quarter: 2022Q1

REPORT INFORMATION
  Report Type: Spontaneous
  Country: DK (occurrence: DK)
  Receive Date: 20220328
  Receipt Date: 20220328
  Transmission Date: 20220423
  Serious: Yes (Other)
  Sender: FDA-Public Use
  Company Number: None

PATIENT
  Age: 40 Year
  Sex: Female

DRUGS (6)
  1. ADALIMUMAB [Suspect]
     Active Substance: ADALIMUMAB
     Indication: Hidradenitis
     Dosage: 160 MILLIGRAM, QWK
     Route: 058
     Dates: start: 20211207, end: 20211213
  2. OMEPRAZOLE TEVA [OMEPRAZOLE] [Concomitant]
     Indication: Prophylaxis against gastrointestinal ulcer
     Dosage: UNK
     Dates: start: 20210105
  3. BENZYDAMINE HYDROCHLORIDE [Concomitant]
     Active Substance: BENZYDAMINE HYDROCHLORIDE
     Indication: Stomatitis
     Dosage: UNK
     Dates: start: 20211027
  4. PENICILLIN V POTASSIUM [Concomitant]
     Active Substance: PENICILLIN V POTASSIUM
     Indication: Erysipelas
     Dosage: UNK
     Dates: start: 20211029
  5. METFORMIN MEDICAL VALLEY [Concomitant]
     Indication: Skin disorder
     Dosage: UNK
     Dates: start: 20211015
  6. NAPROXEN [Concomitant]
     Active Substance: NAPROXEN
     Indication: Pain
     Dosage: UNK
     Dates: start: 20210426

REACTIONS (8)
  - Rectal haemorrhage [Recovering/Resolving]
  - Myalgia [Recovering/Resolving]
  - Fatigue [Recovering/Resolving]
  - Arthralgia [Recovering/Resolving]
  - Depressed mood [Recovered/Resolved]
  - Pyrexia [Recovering/Resolving]
  - Urinary tract infection [Recovering/Resolving]
  - Headache [Recovering/Resolving]

NARRATIVE: CASE EVENT DATE: 20211207
